FAERS Safety Report 9130430 (Version 1)
Quarter: 2013Q1

REPORT INFORMATION
  Report Type: Spontaneous
  Country: ZA (occurrence: ZA)
  Receive Date: 20130301
  Receipt Date: 20130301
  Transmission Date: 20140127
  Serious: Yes (Death, Other)
  Sender: FDA-Public Use
  Company Number: ZA-B.I. PHARMACEUTICALS,INC./RIDGEFIELD-2013-BI-04893GD

PATIENT
  Age: 22 Year
  Sex: Female

DRUGS (5)
  1. VIRAMUNE [Suspect]
     Indication: HIV INFECTION
     Dosage: 200 MG
  2. VIRAMUNE [Suspect]
     Dosage: 400 MG
  3. TENOFOVIR [Suspect]
     Indication: HIV INFECTION
  4. LAMIVUDINE [Suspect]
     Indication: HIV INFECTION
  5. HAEMATINICS [Concomitant]

REACTIONS (8)
  - Hepatic failure [Fatal]
  - Cardio-respiratory arrest [Unknown]
  - Convulsion [Unknown]
  - Postpartum haemorrhage [Unknown]
  - Foetal death [Unknown]
  - Restlessness [Unknown]
  - Jaundice [Unknown]
  - Confusional state [Unknown]
